FAERS Safety Report 6059466-6 (Version None)
Quarter: 2009Q1

REPORT INFORMATION
  Report Type: 
  Country: None (occurrence: None)
  Receive Date: 20090130
  Receipt Date: 20090122
  Transmission Date: 20090719
  Serious: Yes (Hospitalization, Other)
  Sender: FDA-Public Use
  Company Number: PHEH2007US06766

PATIENT
  Sex: Female
  Weight: 73.469 kg

DRUGS (5)
  1. ESTRADERM [Suspect]
     Indication: MENOPAUSE
     Dosage: 0.1MG PATCH/2X WEEK
     Dates: start: 19960101, end: 20020124
  2. VIVELLE [Suspect]
     Indication: MENOPAUSE
     Dosage: 0.05 MG PATCH/2XWEEK
     Dates: start: 20000101
  3. PROVERA [Suspect]
     Indication: MENOPAUSE
     Dosage: 2.5 MG, QD
     Route: 048
     Dates: start: 20000101
  4. PREMARIN [Suspect]
     Indication: MENOPAUSE
     Dosage: 1.25 MG, BID
     Dates: start: 20000401, end: 20000401
  5. ATENOLOL [Concomitant]

REACTIONS (20)
  - ANXIETY [None]
  - AORTIC VALVE INCOMPETENCE [None]
  - AORTIC VALVE SCLEROSIS [None]
  - ARRHYTHMIA [None]
  - BLOOD THYROID STIMULATING HORMONE ABNORMAL [None]
  - BREAST CANCER [None]
  - BREAST CELLULITIS [None]
  - BREAST DISORDER [None]
  - BREAST LUMP REMOVAL [None]
  - BREAST MASS [None]
  - BREAST TENDERNESS [None]
  - EXCESSIVE GRANULATION TISSUE [None]
  - HYPERTHYROIDISM [None]
  - METRORRHAGIA [None]
  - OSTEOPENIA [None]
  - PALPITATIONS [None]
  - POSTMENOPAUSAL HAEMORRHAGE [None]
  - PSEUDOMONAS INFECTION [None]
  - SINUS TACHYCARDIA [None]
  - VENTRICULAR EXTRASYSTOLES [None]
